FAERS Safety Report 12526152 (Version 1)
Quarter: 2016Q3

REPORT INFORMATION
  Report Type: Spontaneous
  Country: US (occurrence: US)
  Receive Date: 20160705
  Receipt Date: 20160705
  Transmission Date: 20161109
  Serious: No
  Sender: FDA-Public Use
  Company Number: US-PFIZER INC-2016303792

PATIENT
  Age: 35 Year
  Sex: Male
  Weight: 81.65 kg

DRUGS (2)
  1. LYRICA [Suspect]
     Active Substance: PREGABALIN
     Dosage: 250 MG, DAILY(100MG IN THE MORNING AND 150MG IN THE EARLY EVENING)
     Route: 048
  2. LYRICA [Suspect]
     Active Substance: PREGABALIN
     Indication: ANXIETY
     Dosage: 50 MG, 1X/DAY
     Route: 048
     Dates: start: 2016

REACTIONS (8)
  - Thinking abnormal [Not Recovered/Not Resolved]
  - Product use issue [Unknown]
  - Disturbance in attention [Not Recovered/Not Resolved]
  - Condition aggravated [Not Recovered/Not Resolved]
  - Memory impairment [Not Recovered/Not Resolved]
  - Irritability [Not Recovered/Not Resolved]
  - Fatigue [Recovering/Resolving]
  - Feeling abnormal [Not Recovered/Not Resolved]

NARRATIVE: CASE EVENT DATE: 2016
